FAERS Safety Report 20991091 (Version 2)
Quarter: 2022Q3

REPORT INFORMATION
  Report Type: Spontaneous
  Country: DE (occurrence: DE)
  Receive Date: 20220622
  Receipt Date: 20220715
  Transmission Date: 20221026
  Serious: Yes (Death, Life-Threatening, Hospitalization, Other)
  Sender: FDA-Public Use
  Company Number: DE-009507513-2206DEU005933

PATIENT
  Age: 83 Year
  Sex: Female
  Weight: 49 kg

DRUGS (1)
  1. KEYTRUDA [Suspect]
     Active Substance: PEMBROLIZUMAB
     Indication: Anal cancer metastatic
     Dosage: 200 MILLIGRAM, Q3W
     Dates: start: 20201027, end: 20220520

REACTIONS (6)
  - Toxic epidermal necrolysis [Fatal]
  - Dehydration [Unknown]
  - Central pain syndrome [Unknown]
  - Impaired healing [Unknown]
  - Female genital tract fistula [Unknown]
  - Product use in unapproved indication [Unknown]

NARRATIVE: CASE EVENT DATE: 20210201
